FAERS Safety Report 21786217 (Version 2)
Quarter: 2022Q4

REPORT INFORMATION
  Report Type: Report from Study
  Country: US (occurrence: US)
  Receive Date: 20221228
  Receipt Date: 20221229
  Transmission Date: 20230113
  Serious: Yes (Death)
  Sender: FDA-Public Use
  Company Number: US-ABBVIE-4251017

PATIENT
  Age: 80 Year
  Sex: Female
  Weight: 50 kg

DRUGS (9)
  1. DUOPA [Suspect]
     Active Substance: CARBIDOPA\LEVODOPA
     Indication: Parkinson^s disease
     Route: 050
     Dates: start: 202211, end: 202211
  2. DUOPA [Suspect]
     Active Substance: CARBIDOPA\LEVODOPA
     Route: 050
     Dates: start: 20221114, end: 20221224
  3. ELIQUIS [Concomitant]
     Active Substance: APIXABAN
     Indication: Cardiac disorder
     Dosage: 2.5 MG
  4. ELIQUIS [Concomitant]
     Active Substance: APIXABAN
     Indication: Cardiac disorder
     Dosage: 2.5 MG
  5. Levodo - Carbidopa [Concomitant]
     Indication: Parkinson^s disease
  6. CARBIDOPA\LEVODOPA [Concomitant]
     Active Substance: CARBIDOPA\LEVODOPA
     Indication: Parkinson^s disease
  7. NOURIANZ [Concomitant]
     Active Substance: ISTRADEFYLLINE
     Indication: Parkinson^s disease
  8. ONGENTYS [Concomitant]
     Active Substance: OPICAPONE
     Indication: Parkinson^s disease
  9. NEUPRO [Concomitant]
     Active Substance: ROTIGOTINE
     Indication: Parkinson^s disease

REACTIONS (5)
  - Death [Fatal]
  - Drug ineffective [Not Recovered/Not Resolved]
  - Mobility decreased [Not Recovered/Not Resolved]
  - Medication error [Not Recovered/Not Resolved]
  - Parkinson^s disease [Not Recovered/Not Resolved]

NARRATIVE: CASE EVENT DATE: 20221101
